FAERS Safety Report 9992752 (Version 1)
Quarter: 2014Q1

REPORT INFORMATION
  Report Type: Spontaneous
  Country: US (occurrence: US)
  Receive Date: 20140310
  Receipt Date: 20140310
  Transmission Date: 20141002
  Serious: No
  Sender: FDA-Public Use
  Company Number: US-PFIZER INC-2014067920

PATIENT
  Sex: Female

DRUGS (3)
  1. CELEBREX [Suspect]
     Indication: PAIN
     Dosage: 200 MG
  2. VICODIN [Concomitant]
     Dosage: UNK
  3. NORCO [Concomitant]
     Dosage: UNK

REACTIONS (3)
  - Drug prescribing error [Unknown]
  - Drug administration error [Unknown]
  - Arthralgia [Unknown]
